FAERS Safety Report 5671339-7 (Version None)
Quarter: 2008Q1

REPORT INFORMATION
  Report Type: 
  Country: None (occurrence: None)
  Receive Date: 20080318
  Receipt Date: 20080307
  Transmission Date: 20080703
  Serious: Yes (Other)
  Sender: FDA-Public Use
  Company Number: AU-PFIZER INC-2008004673

PATIENT
  Sex: Male

DRUGS (3)
  1. CHAMPIX [Suspect]
     Indication: SMOKING CESSATION THERAPY
     Route: 048
     Dates: start: 20080108, end: 20080113
  2. SOLIAN [Concomitant]
     Route: 048
  3. GASTRO-STOP [Concomitant]
     Route: 048

REACTIONS (3)
  - CHOKING SENSATION [None]
  - DYSPHONIA [None]
  - THROAT TIGHTNESS [None]
